FAERS Safety Report 8563860-9 (Version None)
Quarter: 2012Q3

REPORT INFORMATION
  Report Type: 
  Country: None (occurrence: None)
  Receive Date: 20120727
  Receipt Date: 20120727
  Transmission Date: 20120928
  Serious: Yes (Other)
  Sender: FDA-Public Use
  Company Number: None

PATIENT
  Age: 67 Year
  Sex: Male
  Weight: 64.4108 kg

DRUGS (1)
  1. CIPROFLOXACIN [Suspect]
     Indication: PROSTATITIS
     Dosage: 500 MG TWICE DAILY PO
     Route: 048
     Dates: start: 20120511, end: 20120525

REACTIONS (8)
  - CONSTIPATION [None]
  - FUNCTIONAL GASTROINTESTINAL DISORDER [None]
  - VISUAL IMPAIRMENT [None]
  - NEUROPATHY PERIPHERAL [None]
  - ABDOMINAL PAIN UPPER [None]
  - MYALGIA [None]
  - ANXIETY [None]
  - ABDOMINAL DISTENSION [None]
